FAERS Safety Report 6662934-7 (Version None)
Quarter: 2010Q2

REPORT INFORMATION
  Report Type: 
  Country: None (occurrence: None)
  Receive Date: 20100401
  Receipt Date: 20100326
  Transmission Date: 20101027
  Serious: Yes (Life-Threatening)
  Sender: FDA-Public Use
  Company Number: ES-JNJFOC-20100307430

PATIENT
  Age: 36 Year
  Sex: Female

DRUGS (6)
  1. TOPAMAX [Suspect]
     Indication: DRUG USE FOR UNKNOWN INDICATION
     Route: 048
  2. ALAPRYL [Interacting]
     Indication: DEPRESSION
     Route: 048
  3. VENLAFAXINE [Interacting]
     Indication: DEPRESSION
     Route: 048
  4. LORAZEPAM [Interacting]
     Indication: DEPRESSION
     Route: 048
  5. OMEPRAZOLE [Concomitant]
     Indication: DRUG USE FOR UNKNOWN INDICATION
     Route: 048
  6. MAXALT [Concomitant]
     Indication: DRUG USE FOR UNKNOWN INDICATION
     Route: 048

REACTIONS (2)
  - DRUG INTERACTION [None]
  - SUICIDE ATTEMPT [None]
